FAERS Safety Report 16935638 (Version 2)
Quarter: 2019Q4

REPORT INFORMATION
  Report Type: Spontaneous
  Country: US (occurrence: US)
  Receive Date: 20191018
  Receipt Date: 20191210
  Transmission Date: 20200122
  Serious: Yes (Hospitalization)
  Sender: FDA-Public Use
  Company Number: US-VERTEX PHARMACEUTICALS-2019-009859

PATIENT
  Age: 11 Year
  Sex: Male

DRUGS (8)
  1. POLYMYXIN B SULFATE;TRIMETHOPRIM [Concomitant]
  2. ONDANSETRON [Concomitant]
     Active Substance: ONDANSETRON
  3. FLUTICASONE. [Concomitant]
     Active Substance: FLUTICASONE
     Route: 045
  4. PULMOZYME [Concomitant]
     Active Substance: DORNASE ALFA
  5. VITAMIN D [COLECALCIFEROL] [Concomitant]
     Active Substance: CHOLECALCIFEROL
  6. KALYDECO [Suspect]
     Active Substance: IVACAFTOR
     Indication: CYSTIC FIBROSIS
     Dosage: 150 MG, BID
     Route: 048
     Dates: start: 20141003
  7. PROVENTIL [Concomitant]
     Active Substance: ALBUTEROL
  8. SODIUM CHLORIDE. [Concomitant]
     Active Substance: SODIUM CHLORIDE

REACTIONS (1)
  - Lung disorder [Unknown]

NARRATIVE: CASE EVENT DATE: 20191004
